FAERS Safety Report 13772911 (Version 1)
Quarter: 2017Q3

REPORT INFORMATION
  Report Type: Spontaneous
  Country: US (occurrence: US)
  Receive Date: 20170720
  Receipt Date: 20170720
  Transmission Date: 20171127
  Serious: Yes (Other)
  Sender: FDA-Public Use
  Company Number: US-AMGEN-USASP2017107709

PATIENT
  Sex: Female

DRUGS (2)
  1. MTX [Suspect]
     Active Substance: METHOTREXATE SODIUM
     Indication: PRODUCT USED FOR UNKNOWN INDICATION
     Route: 065
  2. PROLIA [Suspect]
     Active Substance: DENOSUMAB
     Indication: PRODUCT USED FOR UNKNOWN INDICATION
     Dosage: UNK
     Route: 065

REACTIONS (12)
  - Loss of personal independence in daily activities [Unknown]
  - Asthenia [Unknown]
  - Blood pressure increased [Unknown]
  - Pain in extremity [Unknown]
  - Gait inability [Unknown]
  - Musculoskeletal pain [Unknown]
  - Grip strength decreased [Unknown]
  - Hypersensitivity [Unknown]
  - Insomnia [Unknown]
  - Rash papular [Unknown]
  - Dysarthria [Unknown]
  - Arthralgia [Unknown]
